FAERS Safety Report 16376384 (Version 1)
Quarter: 2019Q2

REPORT INFORMATION
  Report Type: Report from Study
  Country: DE (occurrence: DE)
  Receive Date: 20190531
  Receipt Date: 20190531
  Transmission Date: 20190711
  Serious: Yes (Hospitalization, Other)
  Sender: FDA-Public Use
  Company Number: DE-SA-2018SA050423

PATIENT
  Age: 45 Year
  Sex: Male

DRUGS (2)
  1. ALEMTUZUMAB [Suspect]
     Active Substance: ALEMTUZUMAB
     Indication: MULTIPLE SCLEROSIS
     Dosage: 12 MG,UNK
     Route: 041
     Dates: start: 20180108, end: 20180110
  2. ALEMTUZUMAB [Suspect]
     Active Substance: ALEMTUZUMAB
     Dosage: 12 MG,UNK
     Route: 041
     Dates: start: 20170109, end: 20170113

REACTIONS (9)
  - Headache [Unknown]
  - Rash erythematous [Unknown]
  - Thyroid function test abnormal [Recovering/Resolving]
  - Neuralgia [Unknown]
  - Headache [Not Recovered/Not Resolved]
  - Herpes zoster [Unknown]
  - Skin plaque [Unknown]
  - Asthenia [Unknown]
  - Hyperthyroidism [Recovering/Resolving]

NARRATIVE: CASE EVENT DATE: 2018
